FAERS Safety Report 23445113 (Version 1)
Quarter: 2024Q1

REPORT INFORMATION
  Report Type: Spontaneous
  Country: US (occurrence: US)
  Receive Date: 20240125
  Receipt Date: 20240125
  Transmission Date: 20240409
  Serious: No
  Sender: FDA-Public Use
  Company Number: US-OYSTER POINT PHARMA, INC-US-OYS-23-001559

PATIENT
  Age: 18 Year
  Sex: Female

DRUGS (1)
  1. TYRVAYA [Suspect]
     Active Substance: VARENICLINE TARTRATE
     Indication: Product used for unknown indication
     Dosage: UNK UNK, BID
     Route: 045

REACTIONS (4)
  - Upper-airway cough syndrome [Unknown]
  - Laryngitis [Unknown]
  - Haemoptysis [Unknown]
  - Throat irritation [Unknown]
